FAERS Safety Report 23771991 (Version 2)
Quarter: 2024Q2

REPORT INFORMATION
  Report Type: Report from Study
  Country: CA (occurrence: CA)
  Receive Date: 20240423
  Receipt Date: 20240530
  Transmission Date: 20240716
  Serious: Yes (Other)
  Sender: FDA-Public Use
  Company Number: CA-IPSEN Group, Research and Development-2024-06270

PATIENT
  Age: 33 Year
  Sex: Female

DRUGS (8)
  1. LANREOTIDE ACETATE [Suspect]
     Active Substance: LANREOTIDE ACETATE
     Indication: Gastroenteropancreatic neuroendocrine tumour disease
     Dosage: 120 MG Q 4 WEEK DEEP SUBCUTANEOUS
     Route: 058
     Dates: start: 20230803
  2. PANTOPRAZOLE [Concomitant]
     Active Substance: PANTOPRAZOLE
     Dosage: 40 MG PO DAILY
     Route: 048
  3. FERAMAX [Concomitant]
     Active Substance: IRON\POLYSACCHARIDES
  4. CREON [Concomitant]
     Active Substance: PANCRELIPASE AMYLASE\PANCRELIPASE LIPASE\PANCRELIPASE PROTEASE
  5. METFORMIN [Concomitant]
     Active Substance: METFORMIN HYDROCHLORIDE
     Dosage: 500 MG PO BID
     Route: 048
  6. FERROUS FUMARATE [Concomitant]
     Active Substance: FERROUS FUMARATE
     Dosage: 300MG PO DAILY
     Route: 048
  7. CREON MINIMICROSPHERES [Concomitant]
     Dosage: TOTAL OF 26 TABS PO 3 TO 5 TIMES WITH MEALS
  8. VITAMIN C [Concomitant]
     Active Substance: ASCORBIC ACID
     Dosage: 500 MG PO DAILY
     Route: 048

REACTIONS (4)
  - Pancreatic failure [Not Recovered/Not Resolved]
  - Computerised tomogram abnormal [Unknown]
  - Anxiety [Not Recovered/Not Resolved]
  - Tachycardia [Not Recovered/Not Resolved]

NARRATIVE: CASE EVENT DATE: 20240401
